FAERS Safety Report 16475281 (Version 3)
Quarter: 2019Q3

REPORT INFORMATION
  Report Type: Spontaneous
  Country: GB (occurrence: GB)
  Receive Date: 20190625
  Receipt Date: 20190724
  Transmission Date: 20191004
  Serious: Yes (Other)
  Sender: FDA-Public Use
  Company Number: PHHY2019GB139319

PATIENT
  Age: 47 Year
  Sex: Female

DRUGS (4)
  1. IMIPRAMINE [Suspect]
     Active Substance: IMIPRAMINE
     Indication: ANTIDEPRESSANT THERAPY
     Dosage: 100 MG, QD
     Route: 065
  2. LITHIUM. [Suspect]
     Active Substance: LITHIUM
     Indication: PSYCHOTIC DISORDER
     Dosage: 800 MG, QD
     Route: 065
  3. LITHIUM. [Suspect]
     Active Substance: LITHIUM
     Dosage: 400 MG, UNK
     Route: 065
  4. OLANZAPINE. [Suspect]
     Active Substance: OLANZAPINE
     Indication: PSYCHOTIC DISORDER
     Dosage: 25 MG, QD
     Route: 065

REACTIONS (8)
  - Tremor [Not Recovered/Not Resolved]
  - Ataxia [Not Recovered/Not Resolved]
  - Product use in unapproved indication [Unknown]
  - Cerebellar atrophy [Not Recovered/Not Resolved]
  - Nystagmus [Not Recovered/Not Resolved]
  - Myoclonus [Not Recovered/Not Resolved]
  - Nervous system disorder [Not Recovered/Not Resolved]
  - Reflexes abnormal [Not Recovered/Not Resolved]
